FAERS Safety Report 13759150 (Version 3)
Quarter: 2017Q3

REPORT INFORMATION
  Report Type: Spontaneous
  Country: KR (occurrence: KR)
  Receive Date: 20170717
  Receipt Date: 20170825
  Transmission Date: 20171127
  Serious: Yes (Hospitalization)
  Sender: FDA-Public Use
  Company Number: KR-009507513-1706KOR000695

PATIENT
  Age: 58 Year
  Sex: Male
  Weight: 72 kg

DRUGS (55)
  1. ANZATAX (PACLITAXEL) [Concomitant]
     Active Substance: PACLITAXEL
     Dosage: 329 MG, ONCE, CYCLE 2
     Route: 042
     Dates: start: 20170228, end: 20170228
  2. MOTILITONE [Concomitant]
     Active Substance: HERBALS
     Indication: PROPHYLAXIS
     Dosage: 30 MG, TID
     Route: 048
     Dates: start: 20160126
  3. CENTRUM ADVANTAGE [Concomitant]
     Active Substance: VITAMINS
     Indication: VITAMIN SUPPLEMENTATION
     Dosage: 1 TABLET, QD
     Route: 048
     Dates: start: 20160212, end: 20170320
  4. CHLORPHENIRAMINE MALEATE. [Concomitant]
     Active Substance: CHLORPHENIRAMINE MALEATE
     Dosage: 4 MG, ONCE
     Route: 048
     Dates: start: 20170321, end: 20170321
  5. CURAN [Concomitant]
     Active Substance: RANITIDINE HYDROCHLORIDE
     Dosage: 50 MG, ONCE; STRENGTH: 50 MG/2 ML
     Route: 042
     Dates: start: 20170228, end: 20170228
  6. EMEND (FOSAPREPITANT DIMEGLUMINE) [Suspect]
     Active Substance: FOSAPREPITANT DIMEGLUMINE
     Indication: PROPHYLAXIS OF NAUSEA AND VOMITING
     Dosage: 150 MG, ONCE
     Route: 042
     Dates: start: 20170207, end: 20170207
  7. ANZATAX (PACLITAXEL) [Concomitant]
     Active Substance: PACLITAXEL
     Dosage: 329 MG, ONCE, CYCLE 3
     Route: 042
     Dates: start: 20170321, end: 20170321
  8. CISPLATIN. [Concomitant]
     Active Substance: CISPLATIN
     Dosage: STRENGTH: 50MG/100ML, 112 MG, ONCE, CYCLE 3
     Route: 042
     Dates: start: 20170321, end: 20170321
  9. CISPLATIN. [Concomitant]
     Active Substance: CISPLATIN
     Dosage: STRENGTH: 50MG/100ML, 114 MG, ONCE, CYCLE 5
     Route: 042
     Dates: start: 20170511, end: 20170511
  10. DEXAMETHASONE SODIUM PHOSPHATE. [Concomitant]
     Active Substance: DEXAMETHASONE SODIUM PHOSPHATE
     Dosage: STRENGTH: 5MG/ML, 12 MG, ONCE
     Route: 042
     Dates: start: 20170228, end: 20170228
  11. DEXAMETHASONE SODIUM PHOSPHATE. [Concomitant]
     Active Substance: DEXAMETHASONE SODIUM PHOSPHATE
     Dosage: STRENGTH: 5MG/ML, 12 MG, ONCE
     Route: 042
     Dates: start: 20170418, end: 20170418
  12. DEXAMETHASONE. [Concomitant]
     Active Substance: DEXAMETHASONE
     Dosage: 4 MG, BID
     Route: 048
     Dates: start: 20170301, end: 20170303
  13. DEXAMETHASONE. [Concomitant]
     Active Substance: DEXAMETHASONE
     Dosage: 4 MG, BID
     Route: 048
     Dates: start: 20170322, end: 20170324
  14. DEXAMETHASONE. [Concomitant]
     Active Substance: DEXAMETHASONE
     Dosage: 4 MG, BID
     Route: 048
     Dates: start: 20170419, end: 20170421
  15. SANCUSO [Concomitant]
     Active Substance: GRANISETRON
     Dosage: 1 EA, QD; STRENGTH: 80.2X66.6 MM^2
     Route: 062
     Dates: start: 20170321, end: 20170327
  16. CHLORPHENIRAMINE MALEATE. [Concomitant]
     Active Substance: CHLORPHENIRAMINE MALEATE
     Indication: ALLERGY PROPHYLAXIS
     Dosage: 4 MG, ONCE
     Route: 042
     Dates: start: 20170207, end: 20170207
  17. CURAN [Concomitant]
     Active Substance: RANITIDINE HYDROCHLORIDE
     Dosage: 50 MG, ONCE; STRENGTH: 50 MG/2 ML
     Route: 042
     Dates: start: 20170418, end: 20170418
  18. ANZATAX (PACLITAXEL) [Concomitant]
     Active Substance: PACLITAXEL
     Dosage: 332 MG, ONCE, CYCLE 4
     Route: 042
     Dates: start: 20170418, end: 20170418
  19. ANZATAX (PACLITAXEL) [Concomitant]
     Active Substance: PACLITAXEL
     Dosage: 332 MG, ONCE, CYCLE 5
     Route: 042
     Dates: start: 20170511, end: 20170511
  20. DEXAMETHASONE SODIUM PHOSPHATE. [Concomitant]
     Active Substance: DEXAMETHASONE SODIUM PHOSPHATE
     Dosage: STRENGTH: 5MG/ML, 12 MG, ONCE
     Route: 042
     Dates: start: 20170511, end: 20170511
  21. DEXAMETHASONE. [Concomitant]
     Active Substance: DEXAMETHASONE
     Indication: PROPHYLAXIS OF NAUSEA AND VOMITING
     Dosage: 4 MG, BID
     Route: 048
     Dates: start: 20170208, end: 20170210
  22. CENTRUM ADVANTAGE [Concomitant]
     Active Substance: VITAMINS
     Indication: MINERAL SUPPLEMENTATION
     Dosage: 1 TABLET, QD
     Route: 048
     Dates: start: 20170331
  23. NORVASC [Concomitant]
     Active Substance: AMLODIPINE BESYLATE
     Indication: HYPERTENSION
     Dosage: 1 TABLET, QD
     Route: 048
     Dates: start: 20160203
  24. KANARB [Concomitant]
     Indication: HYPERTENSION
     Dosage: 30 MG, QD
     Route: 048
     Dates: start: 20160203, end: 20170423
  25. EMEND (FOSAPREPITANT DIMEGLUMINE) [Suspect]
     Active Substance: FOSAPREPITANT DIMEGLUMINE
     Dosage: 150 MG, ONCE
     Route: 042
     Dates: start: 20170511, end: 20170511
  26. CISPLATIN. [Concomitant]
     Active Substance: CISPLATIN
     Indication: GASTRIC CANCER
     Dosage: STRENGTH: 50MG/100ML, 112 MG, ONCE, CYCLE 1
     Route: 042
     Dates: start: 20170207, end: 20170207
  27. CISPLATIN. [Concomitant]
     Active Substance: CISPLATIN
     Dosage: STRENGTH: 50MG/100ML, 112 MG, ONCE, CYCLE 2
     Route: 042
     Dates: start: 20170228, end: 20170228
  28. DEXAMETHASONE. [Concomitant]
     Active Substance: DEXAMETHASONE
     Dosage: 4 MG, BID
     Route: 048
     Dates: start: 20170512, end: 20170514
  29. CHLORPHENIRAMINE MALEATE. [Concomitant]
     Active Substance: CHLORPHENIRAMINE MALEATE
     Dosage: 4 MG, ONCE
     Route: 048
     Dates: start: 20170228, end: 20170228
  30. CHLORPHENIRAMINE MALEATE. [Concomitant]
     Active Substance: CHLORPHENIRAMINE MALEATE
     Dosage: 4 MG, ONCE
     Route: 048
     Dates: start: 20170511, end: 20170511
  31. CURAN [Concomitant]
     Active Substance: RANITIDINE HYDROCHLORIDE
     Dosage: 50 MG, ONCE; STRENGTH: 50 MG/2 ML
     Route: 042
     Dates: start: 20170511, end: 20170511
  32. LASIX [Concomitant]
     Active Substance: FUROSEMIDE
     Dosage: 20 MG, ONCE ; STRENGTH: 20 MG/2 ML
     Route: 042
     Dates: start: 20170511, end: 20170511
  33. ANZATAX (PACLITAXEL) [Concomitant]
     Active Substance: PACLITAXEL
     Indication: GASTRIC CANCER
     Dosage: 329 MG, ONCE, CYCLE 1
     Route: 042
     Dates: start: 20170207, end: 20170207
  34. CISPLATIN. [Concomitant]
     Active Substance: CISPLATIN
     Dosage: STRENGTH: 50MG/100ML, 114 MG, ONCE, CYCLE 4
     Route: 042
     Dates: start: 20170418, end: 20170418
  35. DEXAMETHASONE SODIUM PHOSPHATE. [Concomitant]
     Active Substance: DEXAMETHASONE SODIUM PHOSPHATE
     Dosage: STRENGTH: 5MG/ML, 12 MG, ONCE
     Route: 042
     Dates: start: 20170321, end: 20170321
  36. SANCUSO [Concomitant]
     Active Substance: GRANISETRON
     Dosage: 1 EA, QD; STRENGTH: 80.2X66.6 MM^2
     Route: 062
     Dates: start: 20170227, end: 20170305
  37. PANCRON (DIMETHICONE (+) HEMICELLULASE (+) OX BILE EXTRACT (+) PANCREA [Concomitant]
     Indication: PROPHYLAXIS
     Dosage: 1 TABLET, TID
     Route: 048
     Dates: start: 20160212
  38. LASIX [Concomitant]
     Active Substance: FUROSEMIDE
     Dosage: 20 MG, ONCE; STRENGTH: 20 MG/2 ML
     Route: 042
     Dates: start: 20170321, end: 20170321
  39. EMEND (FOSAPREPITANT DIMEGLUMINE) [Suspect]
     Active Substance: FOSAPREPITANT DIMEGLUMINE
     Dosage: 150 MG, ONCE
     Route: 042
     Dates: start: 20170228, end: 20170228
  40. EMEND (FOSAPREPITANT DIMEGLUMINE) [Suspect]
     Active Substance: FOSAPREPITANT DIMEGLUMINE
     Dosage: 150 MG, ONCE
     Route: 042
     Dates: start: 20170321, end: 20170321
  41. SANCUSO [Concomitant]
     Active Substance: GRANISETRON
     Dosage: 1 EA, QD; STRENGTH: 80.2X66.6 MM^2
     Route: 062
     Dates: start: 20170418, end: 20170424
  42. CHLORPHENIRAMINE MALEATE. [Concomitant]
     Active Substance: CHLORPHENIRAMINE MALEATE
     Dosage: 4 MG, ONCE
     Route: 042
     Dates: start: 20170418, end: 20170418
  43. CURAN [Concomitant]
     Active Substance: RANITIDINE HYDROCHLORIDE
     Indication: PROPHYLAXIS
     Dosage: 50 MG, ONCE; STRENGTH: 50 MG/2 ML
     Route: 042
     Dates: start: 20170207, end: 20170207
  44. HALCION [Concomitant]
     Active Substance: TRIAZOLAM
     Indication: INSOMNIA
     Dosage: 0.25 MG, QD
     Route: 048
     Dates: start: 20160929
  45. LEXAPRO [Concomitant]
     Active Substance: ESCITALOPRAM OXALATE
     Indication: DEPRESSION
     Dosage: 5 MG, QD
     Route: 048
     Dates: start: 20160929
  46. DEXAMETHASONE SODIUM PHOSPHATE. [Concomitant]
     Active Substance: DEXAMETHASONE SODIUM PHOSPHATE
     Indication: PROPHYLAXIS OF NAUSEA AND VOMITING
     Dosage: STRENGTH: 5MG/ML, 12 MG, ONCE
     Route: 042
     Dates: start: 20170207, end: 20170207
  47. SANCUSO [Concomitant]
     Active Substance: GRANISETRON
     Indication: PROPHYLAXIS OF NAUSEA AND VOMITING
     Dosage: 1 EA, QD; STRENGTH: 80.2X66.6 MM^2
     Route: 062
     Dates: start: 20170206, end: 20170212
  48. SANCUSO [Concomitant]
     Active Substance: GRANISETRON
     Dosage: 1 EA, QD; STRENGTH: 80.2X66.6 MM^2
     Route: 062
     Dates: start: 20170511, end: 20170517
  49. PARIET [Concomitant]
     Active Substance: RABEPRAZOLE SODIUM
     Indication: PROPHYLAXIS
     Dosage: 20 MG, QD
     Route: 048
     Dates: start: 20160129
  50. CURAN [Concomitant]
     Active Substance: RANITIDINE HYDROCHLORIDE
     Dosage: 50 MG, ONCE; STRENGTH: 50 MG/2 ML
     Route: 042
     Dates: start: 20170321, end: 20170321
  51. LASIX [Concomitant]
     Active Substance: FUROSEMIDE
     Dosage: 20 MG, ONCE ; STRENGTH: 20 MG/2 ML
     Route: 042
     Dates: start: 20170418, end: 20170418
  52. EMEND (FOSAPREPITANT DIMEGLUMINE) [Suspect]
     Active Substance: FOSAPREPITANT DIMEGLUMINE
     Dosage: 150 MG, ONCE
     Route: 042
     Dates: start: 20170418, end: 20170418
  53. MAGO [Concomitant]
     Indication: CONSTIPATION PROPHYLAXIS
     Dosage: 500 MG, TID
     Route: 048
     Dates: start: 20160523
  54. LASIX [Concomitant]
     Active Substance: FUROSEMIDE
     Indication: PROPHYLAXIS
     Dosage: 20 MG, ONCE; STRENGTH: 20 MG/2 ML
     Route: 042
     Dates: start: 20170207, end: 20170207
  55. LASIX [Concomitant]
     Active Substance: FUROSEMIDE
     Dosage: 20 MG, ONCE; STRENGTH: 20 MG/2 ML
     Route: 042
     Dates: start: 20170228, end: 20170228

REACTIONS (6)
  - Dizziness [Recovered/Resolved]
  - Cough [Recovered/Resolved]
  - Infection [Recovered/Resolved]
  - Pyrexia [Recovered/Resolved]
  - Benign prostatic hyperplasia [Recovered/Resolved]
  - Paraesthesia [Not Recovered/Not Resolved]

NARRATIVE: CASE EVENT DATE: 20170208
